FAERS Safety Report 24648382 (Version 2)
Quarter: 2025Q2

REPORT INFORMATION
  Report Type: Spontaneous
  Country: NL (occurrence: NL)
  Receive Date: 20241121
  Receipt Date: 20250522
  Transmission Date: 20250717
  Serious: Yes (Other)
  Sender: GLAXOSMITHKLINE
  Company Number: NL-GSK-NL2024EME143411

PATIENT

DRUGS (1)
  1. JEMPERLI [Suspect]
     Active Substance: DOSTARLIMAB-GXLY
     Indication: Product used for unknown indication
     Dosage: 500 MG, Q3W (SOLUTION VIAL 50 MG/ML 10 ML (500 MG) FOR INFUSION)
     Dates: start: 20241118, end: 20250507

REACTIONS (2)
  - Rectal cancer [Unknown]
  - Off label use [Unknown]
